FAERS Safety Report 5303405-X (Version None)
Quarter: 2007Q2

REPORT INFORMATION
  Report Type: 
  Country: None (occurrence: None)
  Receive Date: 20070420
  Receipt Date: 20070410
  Transmission Date: 20071010
  Serious: Yes (Hospitalization)
  Sender: FDA-Public Use
  Company Number: IT-ROCHE-492199

PATIENT
  Age: 38 Year
  Sex: Female

DRUGS (4)
  1. CAPECITABINE [Suspect]
     Indication: BREAST CANCER
     Route: 048
     Dates: start: 20070312, end: 20070327
  2. LOPEMID [Concomitant]
     Dates: start: 20051123
  3. PENTOSAN POLYSULPHATE SODIUM [Concomitant]
     Dates: start: 20060222
  4. VITAMIN TAB [Concomitant]
     Dates: start: 20060319

REACTIONS (1)
  - HEPATIC PAIN [None]
